FAERS Safety Report 5167636-4 (Version None)
Quarter: 2006Q4

REPORT INFORMATION
  Report Type: 
  Country: None (occurrence: None)
  Receive Date: 20061204
  Receipt Date: 20061204
  Transmission Date: 20070319
  Serious: Yes (Hospitalization)
  Sender: FDA-Public Use
  Company Number: None

PATIENT
  Age: 39 Year
  Sex: Female
  Weight: 54.8852 kg

DRUGS (1)
  1. ORTHO EVRA [Suspect]
     Indication: CONTRACEPTION
     Dosage: ONCE WEEKLY TRANSDERMAL
     Route: 062
     Dates: start: 20050209, end: 20060921

REACTIONS (2)
  - DEEP VEIN THROMBOSIS [None]
  - POST PROCEDURAL COMPLICATION [None]
